FAERS Safety Report 9759615 (Version 1)
Quarter: 2013Q4

REPORT INFORMATION
  Report Type: Spontaneous
  Country: US (occurrence: US)
  Receive Date: 20131216
  Receipt Date: 20131216
  Transmission Date: 20140711
  Serious: No
  Sender: FDA-Public Use
  Company Number: US-GILEAD-2010-0028215

PATIENT
  Age: 76 Year
  Sex: Female

DRUGS (11)
  1. LETAIRIS [Suspect]
     Indication: PULMONARY ARTERIAL HYPERTENSION
     Route: 048
     Dates: start: 20100226, end: 20100320
  2. WARFARIN [Concomitant]
  3. KLONOPIN [Concomitant]
  4. LASIX [Concomitant]
  5. MIDODRINE [Concomitant]
  6. FLECAINIDE [Concomitant]
  7. RANITIDINE [Concomitant]
  8. VICODIN [Concomitant]
  9. OSCAL + D [Concomitant]
  10. MVI [Concomitant]
  11. TYLENOL [Concomitant]

REACTIONS (3)
  - Haemorrhage subepidermal [Recovered/Resolved]
  - Headache [Recovered/Resolved]
  - Constipation [Recovering/Resolving]
